FAERS Safety Report 25108933 (Version 1)
Quarter: 2025Q1

REPORT INFORMATION
  Report Type: Spontaneous
  Country: US (occurrence: US)
  Receive Date: 20250322
  Receipt Date: 20250322
  Transmission Date: 20250409
  Serious: No
  Sender: SANOFI AVENTIS
  Company Number: US-SA-2025SA083557

PATIENT
  Age: 35 Year
  Sex: Male
  Weight: 93.18 kg

DRUGS (5)
  1. DUPIXENT [Suspect]
     Active Substance: DUPILUMAB
     Indication: Dermatitis atopic
     Dosage: 300 MG, QOW
     Route: 058
  2. EBGLYSS [Concomitant]
     Active Substance: LEBRIKIZUMAB-LBKZ
  3. DICLOFENAC SODIUM [Concomitant]
     Active Substance: DICLOFENAC SODIUM
  4. CYCLOBENZAPRINE HYDROCHLORIDE [Concomitant]
     Active Substance: CYCLOBENZAPRINE HYDROCHLORIDE
  5. ANUSOL HC [Concomitant]
     Active Substance: HYDROCORTISONE

REACTIONS (1)
  - Drug ineffective [Unknown]
